FAERS Safety Report 5721127-8 (Version None)
Quarter: 2008Q2

REPORT INFORMATION
  Report Type: 
  Country: None (occurrence: None)
  Receive Date: 20080429
  Receipt Date: 20080424
  Transmission Date: 20081010
  Serious: Yes (Hospitalization, Disabling)
  Sender: FDA-Public Use
  Company Number: A0724534A

PATIENT
  Age: 89 Year
  Sex: Male

DRUGS (2)
  1. REQUIP [Suspect]
     Indication: PARKINSON'S DISEASE
     Dosage: 1.25MG THREE TIMES PER DAY
     Route: 048
     Dates: start: 20080101
  2. SINEMET [Concomitant]

REACTIONS (1)
  - PULMONARY CONGESTION [None]
